FAERS Safety Report 9588115 (Version 1)
Quarter: 2013Q4

REPORT INFORMATION
  Report Type: Spontaneous
  Country: US (occurrence: US)
  Receive Date: 20131003
  Receipt Date: 20131003
  Transmission Date: 20140711
  Serious: No
  Sender: FDA-Public Use
  Company Number: US-AMGEN-USASP2012068110

PATIENT
  Sex: Male
  Weight: 122.45 kg

DRUGS (5)
  1. ENBREL [Suspect]
     Indication: PSORIASIS
     Dosage: 50 MG, 2 TIMES/WK
     Route: 058
  2. SYNTHROID [Concomitant]
     Dosage: 200 MCG
  3. IBUPROFEN [Concomitant]
     Dosage: 200 MG, UNK
  4. VITAMIN D                          /00107901/ [Concomitant]
     Dosage: 400 UNK, UNK
  5. STELARA [Concomitant]
     Dosage: 90 MG/ML

REACTIONS (1)
  - Drug ineffective [Unknown]
